FAERS Safety Report 6166220-3 (Version None)
Quarter: 2009Q2

REPORT INFORMATION
  Report Type: 
  Country: None (occurrence: None)
  Receive Date: 20090424
  Receipt Date: 20090414
  Transmission Date: 20091009
  Serious: Yes (Other)
  Sender: FDA-Public Use
  Company Number: FR-JNJFOC-20090304640

PATIENT
  Age: 35 Year
  Sex: Female

DRUGS (8)
  1. REMICADE [Suspect]
     Dosage: 14TH INFUSION
     Route: 042
  2. REMICADE [Suspect]
     Dosage: 14TH INFUSION
     Route: 042
  3. REMICADE [Suspect]
     Indication: RHEUMATOID ARTHRITIS
     Dosage: 13 INFUSIONS
     Route: 042
  4. FORLAX [Concomitant]
  5. DOLIPRANE [Concomitant]
  6. OMEPRAZOL [Concomitant]
  7. OXYCONTIN [Concomitant]
  8. OXYNORM [Concomitant]

REACTIONS (6)
  - ERYTHEMA [None]
  - FACE OEDEMA [None]
  - PRURITUS [None]
  - PRURITUS GENERALISED [None]
  - SCAR [None]
  - TYPE IV HYPERSENSITIVITY REACTION [None]
